FAERS Safety Report 5842343-0 (Version None)
Quarter: 2008Q3

REPORT INFORMATION
  Report Type: 
  Country: None (occurrence: None)
  Receive Date: 20080731
  Receipt Date: 20080619
  Transmission Date: 20090109
  Serious: No
  Sender: FDA-Public Use
  Company Number: US200806004748

PATIENT
  Age: 74 Year
  Sex: Male

DRUGS (12)
  1. BYETTA [Suspect]
     Indication: TYPE 2 DIABETES MELLITUS
     Dosage: 10 UG, 2/D, SUBCUTANEOUS
     Route: 058
     Dates: start: 20070101
  2. AVODART /USA/ (DUTASTERIDE) [Concomitant]
  3. LYRICA [Concomitant]
  4. FLOMAX [Concomitant]
  5. CRESTOR [Concomitant]
  6. FUROSEMIDE (FUROSEMIDE) [Concomitant]
  7. LISINOPRIL /USA/ (LISINOPRIL) [Concomitant]
  8. CO-Q10 (UBIDECARENONE) [Concomitant]
  9. VITAMIN TAB [Concomitant]
  10. ASPIRIN [Concomitant]
  11. FISH OIL (FISH OIL) [Concomitant]
  12. EXENATIDE [Concomitant]

REACTIONS (1)
  - VISUAL ACUITY REDUCED [None]
